FAERS Safety Report 5731839-8 (Version None)
Quarter: 2008Q2

REPORT INFORMATION
  Report Type: 
  Country: None (occurrence: None)
  Receive Date: 20080508
  Receipt Date: 20080505
  Transmission Date: 20081010
  Serious: Yes (Hospitalization)
  Sender: FDA-Public Use
  Company Number: B0509396A

PATIENT
  Age: 50 Year
  Sex: Female

DRUGS (5)
  1. WELLBUTRIN [Suspect]
     Indication: DEPRESSION
     Dosage: 300MG PER DAY
     Route: 048
     Dates: start: 20080120, end: 20080203
  2. UNKNOWN DRUG [Concomitant]
     Indication: DRUG USE FOR UNKNOWN INDICATION
     Route: 065
  3. FLUVOXAMINE MALEATE [Concomitant]
     Indication: DEPRESSION
     Dosage: 300MG PER DAY
  4. RILATINE [Concomitant]
  5. ANAFRANIL [Concomitant]
     Indication: DEPRESSION
     Dosage: 75MG PER DAY

REACTIONS (5)
  - CONVULSION [None]
  - EPILEPSY [None]
  - LOSS OF CONSCIOUSNESS [None]
  - SYNCOPE [None]
  - TONGUE BITING [None]
